FAERS Safety Report 9496674 (Version 1)
Quarter: 2013Q3

REPORT INFORMATION
  Report Type: Report from Study
  Country: US (occurrence: US)
  Receive Date: 20130904
  Receipt Date: 20130904
  Transmission Date: 20140515
  Serious: Yes (Hospitalization)
  Sender: FDA-Public Use
  Company Number: PHHO2013US011310

PATIENT
  Age: 65 Year
  Sex: Male

DRUGS (20)
  1. ALDESLEUKIN [Suspect]
     Indication: RENAL CELL CARCINOMA
     Dosage: 600000 IU/KG, Q8H
     Route: 042
     Dates: start: 20130729, end: 20130805
  2. HYDROXYCHLOROQUINE [Suspect]
     Indication: RENAL CELL CARCINOMA
     Dosage: 600 MG, BID
     Dates: start: 20130729, end: 20130805
  3. HYDROXYCHLOROQUINE [Suspect]
     Dosage: 600 MG, BID
     Dates: start: 20130808
  4. VERAPAMIL [Concomitant]
     Indication: HYPERTENSION
     Dosage: 240 MG, UNK
  5. LISINOPRIL [Concomitant]
     Indication: HYPERTENSION
     Dosage: 10 MG, QD
  6. CALCIUM [Concomitant]
     Indication: OSTEOPENIA
     Dosage: UNK
  7. LIPITOR [Concomitant]
     Indication: HYPERCHOLESTEROLAEMIA
     Dosage: 20 MG, UNK
  8. ASPIRIN [Concomitant]
     Dosage: 162 MG, UNK
  9. COMBIGAN [Concomitant]
     Indication: GLAUCOMA
     Dosage: UNK
     Dates: start: 2010
  10. DORZOLAMIDE [Concomitant]
     Indication: GLAUCOMA
     Dosage: UNK
     Dates: start: 2010
  11. LUMIGAN [Concomitant]
     Indication: GLAUCOMA
     Dosage: UNK
     Dates: start: 2010
  12. VITAMIIN C [Concomitant]
     Indication: MEDICAL DIET
     Dosage: 500 MG, UNK
     Dates: start: 2003
  13. ANDROGEL [Concomitant]
     Indication: BLOOD TESTOSTERONE DECREASED
     Dosage: UNK
     Dates: start: 1980
  14. NIASPAN [Concomitant]
     Indication: HYPERCHOLESTEROLAEMIA
     Dosage: 500 MG, UNK
  15. CENTRUM SILVER [Concomitant]
     Indication: MEDICAL DIET
     Dosage: UNK
     Dates: start: 2003
  16. XANAX [Concomitant]
     Indication: INSOMNIA
     Dosage: UNK
     Dates: start: 2010
  17. COMPAZINE [Concomitant]
     Indication: NAUSEA
     Dosage: 10 MG, UNK
     Dates: start: 20130716
  18. LASIX [Concomitant]
     Indication: OEDEMA
     Dosage: 20 MG, UNK
     Dates: start: 20130804
  19. K-DUR [Concomitant]
     Indication: OEDEMA
     Dosage: 20 MG, UNK
     Dates: start: 20130804
  20. ATORVASTATIN [Concomitant]
     Dosage: UNK

REACTIONS (5)
  - Diarrhoea [Unknown]
  - Skin discolouration [Unknown]
  - Dyspnoea [Recovered/Resolved]
  - Oedema [Recovered/Resolved]
  - Haemoptysis [Recovered/Resolved]
